FAERS Safety Report 23339993 (Version 5)
Quarter: 2025Q2

REPORT INFORMATION
  Report Type: Spontaneous
  Country: US (occurrence: US)
  Receive Date: 20231226
  Receipt Date: 20250411
  Transmission Date: 20250717
  Serious: Yes (Other)
  Sender: AMGEN
  Company Number: US-AMGEN-USASP2023229976

PATIENT
  Age: 55 Year
  Sex: Male

DRUGS (4)
  1. OTEZLA [Suspect]
     Active Substance: APREMILAST
     Indication: Psoriatic arthropathy
     Dosage: 30 MILLIGRAM, BID, APPROXIMATELY 12HOURS APART
     Route: 048
     Dates: start: 20231117
  2. OTEZLA [Suspect]
     Active Substance: APREMILAST
     Indication: Psoriasis
  3. ENTRESTO [Concomitant]
     Active Substance: SACUBITRIL\VALSARTAN
  4. RINVOQ [Concomitant]
     Active Substance: UPADACITINIB

REACTIONS (8)
  - Psoriatic arthropathy [Not Recovered/Not Resolved]
  - Skin irritation [Unknown]
  - Product dose omission issue [Not Recovered/Not Resolved]
  - General symptom [Unknown]
  - Rash [Unknown]
  - Infection [Not Recovered/Not Resolved]
  - Alopecia [Not Recovered/Not Resolved]
  - Psoriasis [Not Recovered/Not Resolved]
